FAERS Safety Report 4683373-4 (Version None)
Quarter: 2005Q2

REPORT INFORMATION
  Report Type: 
  Country: None (occurrence: None)
  Receive Date: 20050606
  Receipt Date: 20050606
  Transmission Date: 20051028
  Serious: Yes (Hospitalization)
  Sender: FDA-Public Use
  Company Number: None

PATIENT
  Age: 70 Year
  Sex: Female
  Weight: 65.7716 kg

DRUGS (7)
  1. ALTOPREV [Suspect]
     Indication: BLOOD CHOLESTEROL INCREASED
     Dosage: 60 MG ONE PER DAY ORAL
     Route: 048
     Dates: start: 20041123, end: 20050522
  2. NIASPAN [Suspect]
     Indication: BLOOD CHOLESTEROL INCREASED
     Dosage: 500 MG ER ONE PER DAY ORAL
     Route: 048
     Dates: start: 20050425, end: 20050522
  3. PEPCID AC [Concomitant]
  4. PREMERIN [Concomitant]
  5. ASPIRIN [Concomitant]
  6. VITAMIN [Concomitant]
  7. CALCIUM GLUCONATE [Concomitant]

REACTIONS (1)
  - MYALGIA [None]
